FAERS Safety Report 6199906-5 (Version None)
Quarter: 2009Q2

REPORT INFORMATION
  Report Type: 
  Country: None (occurrence: None)
  Receive Date: 20090522
  Receipt Date: 20090520
  Transmission Date: 20091009
  Serious: Yes (Death, Hospitalization)
  Sender: FDA-Public Use
  Company Number: BE-BAYER-200921370GPV

PATIENT
  Age: 64 Year
  Sex: Male
  Weight: 57 kg

DRUGS (5)
  1. NEXAVAR [Suspect]
     Indication: RENAL CELL CARCINOMA
     Route: 065
     Dates: start: 20090326, end: 20090409
  2. NEXAVAR [Suspect]
     Route: 065
     Dates: start: 20090303, end: 20090319
  3. FENTANYL [Concomitant]
     Indication: DRUG USE FOR UNKNOWN INDICATION
     Route: 065
     Dates: start: 20090101, end: 20090413
  4. DIMETHYL SULFOXIDE [Concomitant]
     Indication: DRUG USE FOR UNKNOWN INDICATION
     Dates: start: 20090319, end: 20090413
  5. DURAGESIC-100 [Concomitant]
     Indication: DRUG USE FOR UNKNOWN INDICATION
     Route: 065
     Dates: start: 20090401, end: 20090413

REACTIONS (3)
  - DYSPNOEA [None]
  - PALMAR-PLANTAR ERYTHRODYSAESTHESIA SYNDROME [None]
  - RENAL CELL CARCINOMA [None]
